FAERS Safety Report 8618796 (Version 2)
Quarter: 2012Q4

REPORT INFORMATION
  Report Type: 
  Country: US (occurrence: US)
  Receive Date: 20120618
  Receipt Date: 20120822
  Transmission Date: 20130627
  Serious: Yes (Hospitalization, Other)
  Sender: FDA-Public Use
  Company Number: US-ELI_LILLY_AND_COMPANY-US201206002350

PATIENT
  Age: 42 Year
  Sex: Female

DRUGS (2)
  1. CYMBALTA [Suspect]
     Dosage: 30 mg, qd
  2. BUPRENORPHINE [Concomitant]
     Dosage: 5 ug, unknown

REACTIONS (3)
  - Pericardial effusion [Recovered/Resolved]
  - Pleural effusion [Unknown]
  - Drug interaction [Unknown]
